FAERS Safety Report 7824058-2 (Version None)
Quarter: 2011Q4

REPORT INFORMATION
  Report Type: 
  Country: None (occurrence: None)
  Receive Date: 20111018
  Receipt Date: 20111018
  Transmission Date: 20120403
  Serious: Yes (Hospitalization)
  Sender: FDA-Public Use
  Company Number: None

PATIENT
  Age: 64 Year
  Sex: Male

DRUGS (2)
  1. EPTIFIBATIDE [Suspect]
     Indication: STENT PLACEMENT
     Dosage: 7.5 ML PER HOUR IV
     Route: 042
     Dates: start: 20110928, end: 20110929
  2. CLOPIDOGREL [Suspect]
     Indication: STENT PLACEMENT
     Dosage: 75 MG EVERY DAY PO
     Route: 048
     Dates: start: 20110919

REACTIONS (1)
  - HAEMORRHAGE [None]
